FAERS Safety Report 10236674 (Version 1)
Quarter: 2014Q2

REPORT INFORMATION
  Report Type: Spontaneous
  Country: BR (occurrence: BR)
  Receive Date: 20140613
  Receipt Date: 20140613
  Transmission Date: 20141212
  Serious: Yes (Hospitalization)
  Sender: FDA-Public Use
  Company Number: BR-009507513-1406BRA007065

PATIENT
  Age: 63 Year
  Sex: Female
  Weight: 72 kg

DRUGS (9)
  1. TEMODAL [Suspect]
     Indication: BRAIN NEOPLASM MALIGNANT
     Dosage: 140 MG, QD
     Route: 048
     Dates: start: 20140207, end: 20140320
  2. TEMODAL [Suspect]
     Dosage: 140 MG, QD
     Route: 048
     Dates: start: 20140207, end: 20140320
  3. TEMODAL [Suspect]
     Dosage: 140 MG, QD
     Route: 048
     Dates: start: 20140207, end: 20140320
  4. DECADRON (DEXAMETHASONE ACETATE) [Concomitant]
     Indication: BRAIN NEOPLASM MALIGNANT
  5. LAMICTAL [Concomitant]
     Indication: BRAIN NEOPLASM MALIGNANT
     Dosage: UNK
  6. BACTRIM F [Concomitant]
     Indication: BRAIN NEOPLASM MALIGNANT
  7. CENTRUM (MINERALS (UNSPECIFIED) (+) VITAMINS (UNSPECIFIED)) [Concomitant]
     Indication: BRAIN NEOPLASM MALIGNANT
  8. NEUTROFER FOLICO [Concomitant]
     Indication: BRAIN NEOPLASM MALIGNANT
  9. ASCORBIC ACID [Concomitant]
     Indication: BRAIN NEOPLASM MALIGNANT

REACTIONS (7)
  - Hypotension [Recovered/Resolved]
  - Febrile neutropenia [Recovered/Resolved]
  - Thrombocytopenia [Recovered/Resolved]
  - Pyrexia [Recovered/Resolved]
  - Petechiae [Recovered/Resolved]
  - Hidradenitis [Recovered/Resolved]
  - Platelet transfusion [Unknown]
